FAERS Safety Report 4279209-6 (Version None)
Quarter: 2004Q1

REPORT INFORMATION
  Report Type: 
  Country: None (occurrence: None)
  Receive Date: 20040122
  Receipt Date: 20040109
  Transmission Date: 20041129
  Serious: Yes (Hospitalization)
  Sender: FDA-Public Use
  Company Number: 2003SE00661

PATIENT
  Age: 76 Year
  Sex: Female
  Weight: 45 kg

DRUGS (2)
  1. PULMICORT [Suspect]
  2. CELEBREX [Concomitant]

REACTIONS (3)
  - BACK PAIN [None]
  - OSTEOPOROSIS [None]
  - SPINAL FRACTURE [None]
